FAERS Safety Report 12127368 (Version 4)
Quarter: 2016Q2

REPORT INFORMATION
  Report Type: Spontaneous
  Country: US (occurrence: US)
  Receive Date: 20160229
  Receipt Date: 20160518
  Transmission Date: 20160815
  Serious: Yes (Hospitalization)
  Sender: FDA-Public Use
  Company Number: US-PFIZER INC-2016122112

PATIENT
  Age: 3 Year
  Sex: Male
  Weight: 11 kg

DRUGS (16)
  1. GENOTROPIN [Suspect]
     Active Substance: SOMATROPIN
     Indication: GROWTH HORMONE DEFICIENCY
     Dosage: 0.6 MG, 1X/DAY AT BEDTIME
  2. ONDANSETRON [Concomitant]
     Active Substance: ONDANSETRON
     Indication: VOMITING
  3. OMEPRAZOLE. [Concomitant]
     Active Substance: OMEPRAZOLE
     Indication: GASTROOESOPHAGEAL REFLUX DISEASE
     Dosage: 3 ML, 1X/DAY VIA G-TUBE AT BEDTIME
  4. SODIUM CHLORIDE. [Concomitant]
     Active Substance: SODIUM CHLORIDE
     Indication: DEHYDRATION
     Dosage: 0.25, 2X/DAY
     Route: 042
  5. ONDANSETRON [Concomitant]
     Active Substance: ONDANSETRON
     Indication: NAUSEA
     Dosage: 1.5 ML, AS NEEDED (VIA G-TUBE)
     Dates: end: 20160406
  6. SODIUM CHLORIDE. [Concomitant]
     Active Substance: SODIUM CHLORIDE
     Indication: HYPONATRAEMIA
     Dosage: 6.25 ML, 2X/DAY
     Route: 048
     Dates: end: 20160406
  7. MIRALAX [Concomitant]
     Active Substance: POLYETHYLENE GLYCOL 3350
     Indication: CONSTIPATION
     Dosage: 17 G, DAILY (BY G-TUBE)
     Route: 048
     Dates: end: 20160406
  8. TYLENOL [Concomitant]
     Active Substance: ACETAMINOPHEN
     Indication: PYREXIA
     Dosage: 5ML/160MG, AS NEEDED (EVERY 6 HOURS THROUGH FEEDING TUBE)
     Route: 048
     Dates: start: 201602
  9. OMEPRAZOLE. [Concomitant]
     Active Substance: OMEPRAZOLE
     Indication: ACID BASE BALANCE
     Dosage: 3 MG, 1X/DAY (AT BEDTIME)
     Route: 048
     Dates: end: 20160406
  10. TYLENOL [Concomitant]
     Active Substance: ACETAMINOPHEN
     Indication: PAIN
  11. GENOTROPIN [Suspect]
     Active Substance: SOMATROPIN
     Dosage: UNK
  12. GENOTROPIN [Suspect]
     Active Substance: SOMATROPIN
     Dosage: UNK
  13. EPOGEN [Concomitant]
     Active Substance: ERYTHROPOIETIN
     Indication: ANAEMIA
     Dosage: 2000 IU, WEEKLY (EVERY MONDAY)
     Route: 058
     Dates: end: 20160406
  14. MELATONIN [Concomitant]
     Active Substance: MELATONIN
     Indication: SLEEP DISORDER
     Dosage: 3 ML, 1X/DAY (AT BEDTIME VIA G-TUBE)
     Route: 048
  15. GENOTROPIN [Suspect]
     Active Substance: SOMATROPIN
     Dosage: 0.6 UG, DAILY
     Dates: start: 201601
  16. CALCITRIOL. [Concomitant]
     Active Substance: CALCITRIOL
     Indication: HYPOCALCAEMIA
     Dosage: 0.3 ML, UNK
     Route: 048
     Dates: end: 20160406

REACTIONS (2)
  - Renal failure [Recovered/Resolved]
  - Weight decreased [Recovered/Resolved]

NARRATIVE: CASE EVENT DATE: 201601
